FAERS Safety Report 16019103 (Version 4)
Quarter: 2019Q2

REPORT INFORMATION
  Report Type: Report from Study
  Country: JP (occurrence: JP)
  Receive Date: 20190228
  Receipt Date: 20190529
  Transmission Date: 20190711
  Serious: Yes (Hospitalization)
  Sender: FDA-Public Use
  Company Number: JP-EISAI MEDICAL RESEARCH-EC-2019-052807

PATIENT
  Age: 75 Year
  Sex: Male
  Weight: 49 kg

DRUGS (16)
  1. SODIUM CHLORIDE. [Concomitant]
     Active Substance: SODIUM CHLORIDE
  2. ZADITEN [Concomitant]
     Active Substance: KETOTIFEN FUMARATE
  3. NEXIUM [Concomitant]
     Active Substance: ESOMEPRAZOLE MAGNESIUM
  4. DEXALTIN [Concomitant]
     Active Substance: DEXAMETHASONE
  5. AZUNOL [SODIUM GUALENATE] [Concomitant]
     Active Substance: SODIUM GUALENATE
  6. ERIBULIN [Suspect]
     Active Substance: ERIBULIN
     Route: 041
     Dates: start: 20190312, end: 20190423
  7. HOKUNALIN TAPE [Concomitant]
     Active Substance: TULOBUTEROL
  8. CELECOX [Concomitant]
     Active Substance: CELECOXIB
  9. LOXONIN [Concomitant]
     Active Substance: LOXOPROFEN SODIUM
  10. NITRAZEPAM [Concomitant]
     Active Substance: NITRAZEPAM
  11. SENNOSIDE [Concomitant]
     Active Substance: SENNOSIDES
  12. ERIBULIN [Suspect]
     Active Substance: ERIBULIN
     Indication: SMALL CELL LUNG CANCER
     Route: 041
     Dates: start: 20190219, end: 2019
  13. HIRUDOID [Concomitant]
     Active Substance: GLYCOSAMINOGLYCANS
  14. VALTREX [Concomitant]
     Active Substance: VALACYCLOVIR HYDROCHLORIDE
  15. GLYCERIN. [Concomitant]
     Active Substance: GLYCERIN
  16. XYLOCAINE [Concomitant]
     Active Substance: LIDOCAINE HYDROCHLORIDE

REACTIONS (2)
  - Ileus [Recovering/Resolving]
  - Febrile neutropenia [Recovered/Resolved]

NARRATIVE: CASE EVENT DATE: 20190226
